FAERS Safety Report 17478530 (Version 1)
Quarter: 2020Q1

REPORT INFORMATION
  Report Type: Spontaneous
  Country: BE (occurrence: BE)
  Receive Date: 20200228
  Receipt Date: 20200228
  Transmission Date: 20200409
  Serious: Yes (Hospitalization, Other)
  Sender: FDA-Public Use
  Company Number: BE-ASTRAZENECA-2020SE28975

PATIENT
  Sex: Female

DRUGS (2)
  1. FASLODEX [Suspect]
     Active Substance: FULVESTRANT
     Dosage: 500 MG UNKNOWN
     Route: 030
  2. FASLODEX [Suspect]
     Active Substance: FULVESTRANT
     Dosage: 500 MG UNKNOWN
     Route: 030

REACTIONS (8)
  - Dyspnoea [Unknown]
  - Pneumonia [Unknown]
  - Hypersomnia [Unknown]
  - Gait disturbance [Recovering/Resolving]
  - Decreased appetite [Unknown]
  - Malaise [Unknown]
  - Dyspepsia [Unknown]
  - Migraine [Unknown]
